FAERS Safety Report 20083666 (Version 2)
Quarter: 2021Q4

REPORT INFORMATION
  Report Type: Report from Study
  Country: US (occurrence: US)
  Receive Date: 20211118
  Receipt Date: 20211124
  Transmission Date: 20220303
  Serious: No
  Sender: FDA-Public Use
  Company Number: US-NOVARTISTESTPH-NVSC2021US263675

PATIENT
  Age: 67 Year
  Sex: Male

DRUGS (3)
  1. XOLAIR [Suspect]
     Active Substance: OMALIZUMAB
     Indication: Urticaria
     Dosage: UNK, EVERY 4 WEEKS
     Route: 065
     Dates: start: 202107
  2. ENTRESTO [Suspect]
     Active Substance: SACUBITRIL\VALSARTAN
     Indication: Cardiac failure
     Dosage: 24.26 MG, EVERY 5 DAYS
     Route: 048
     Dates: start: 201912, end: 202006
  3. ENTRESTO [Suspect]
     Active Substance: SACUBITRIL\VALSARTAN
     Dosage: UNK
     Route: 048
     Dates: start: 20201127

REACTIONS (9)
  - Fall [Unknown]
  - Insomnia [Unknown]
  - Dyspnoea [Unknown]
  - Oxygen saturation decreased [Unknown]
  - Asthenia [Unknown]
  - Pain in extremity [Unknown]
  - Fatigue [Unknown]
  - Urticaria [Unknown]
  - Rash [Unknown]

NARRATIVE: CASE EVENT DATE: 20200301
